FAERS Safety Report 8004049-1 (Version None)
Quarter: 2011Q4

REPORT INFORMATION
  Report Type: 
  Country: None (occurrence: None)
  Receive Date: 20111222
  Receipt Date: 20111214
  Transmission Date: 20120403
  Serious: Yes (Hospitalization, Other)
  Sender: FDA-Public Use
  Company Number: IE-ASTRAZENECA-2011SE45079

PATIENT
  Age: 78 Year
  Sex: Male

DRUGS (8)
  1. GONADORELIN INJ [Concomitant]
     Dates: start: 20111101
  2. ENALAPRIL MALEATE AND HYDROCHLOROTHIAZIDE [Concomitant]
     Dates: start: 20080213
  3. BISOPROLOL FUMARATE [Concomitant]
     Dates: start: 20080213
  4. ALLOPURINOL [Concomitant]
     Dates: start: 20080213
  5. CRESTOR [Suspect]
     Indication: HYPERCHOLESTEROLAEMIA
     Route: 048
  6. LIPITOR [Concomitant]
     Dates: start: 20111101
  7. NU-SEALS ASPIRIN [Concomitant]
     Dates: start: 20090205
  8. WARFARIN TEVA [Concomitant]
     Dates: start: 20111101

REACTIONS (7)
  - CEREBRAL INFARCTION [None]
  - ATRIAL FIBRILLATION [None]
  - VISION BLURRED [None]
  - HAEMORRHAGIC STROKE [None]
  - DIZZINESS [None]
  - TRANSIENT ISCHAEMIC ATTACK [None]
  - PETECHIAE [None]
